FAERS Safety Report 11191427 (Version 1)
Quarter: 2015Q2

REPORT INFORMATION
  Report Type: Spontaneous
  Country: CL (occurrence: CL)
  Receive Date: 20150616
  Receipt Date: 20150616
  Transmission Date: 20150821
  Serious: Yes (Other)
  Sender: FDA-Public Use
  Company Number: CL-009507513-1506CHL004832

PATIENT
  Age: 41 Year
  Sex: Female

DRUGS (1)
  1. IMPLANON [Suspect]
     Active Substance: ETONOGESTREL
     Indication: CHEMICAL CONTRACEPTION
     Dosage: UNK
     Route: 059
     Dates: start: 201503

REACTIONS (8)
  - Thyroid disorder [Unknown]
  - Libido decreased [Not Recovered/Not Resolved]
  - Acne [Not Recovered/Not Resolved]
  - Musculoskeletal stiffness [Unknown]
  - Goitre [Unknown]
  - Hormone level abnormal [Not Recovered/Not Resolved]
  - Thyroidectomy [Recovered/Resolved]
  - Asthenia [Not Recovered/Not Resolved]

NARRATIVE: CASE EVENT DATE: 2015
